FAERS Safety Report 15368754 (Version 1)
Quarter: 2018Q3

REPORT INFORMATION
  Report Type: Report from Study
  Country: None (occurrence: DE)
  Receive Date: 20180911
  Receipt Date: 20180911
  Transmission Date: 20181010
  Serious: Yes (Hospitalization)
  Sender: FDA-Public Use
  Company Number: DE-ABBVIE-18K-062-2478035-00

PATIENT
  Age: 50 Year
  Sex: Female
  Weight: 49 kg

DRUGS (1)
  1. HUMIRA [Suspect]
     Active Substance: ADALIMUMAB
     Indication: CROHN^S DISEASE
     Route: 058
     Dates: start: 2012

REACTIONS (5)
  - Amnesia [Recovered/Resolved]
  - Seizure [Recovered/Resolved]
  - Muscle spasms [Recovered/Resolved]
  - Crying [Recovered/Resolved]
  - Restlessness [Recovered/Resolved]

NARRATIVE: CASE EVENT DATE: 20180828
